FAERS Safety Report 24784133 (Version 1)
Quarter: 2024Q4

REPORT INFORMATION
  Report Type: Spontaneous
  Country: CN (occurrence: CN)
  Receive Date: 20241227
  Receipt Date: 20241227
  Transmission Date: 20250115
  Serious: Yes (Other)
  Sender: PURDUE
  Company Number: CN-NAPPMUNDI-GBR-2024-0122323

PATIENT
  Age: 59 Year
  Sex: Male
  Weight: 66 kg

DRUGS (6)
  1. MORPHINE SULFATE [Suspect]
     Active Substance: MORPHINE SULFATE
     Indication: Pain
     Dosage: 60 MILLIGRAM, Q12H
     Route: 048
     Dates: start: 20241128, end: 2024
  2. MORPHINE SULFATE [Suspect]
     Active Substance: MORPHINE SULFATE
     Dosage: 90 MILLIGRAM, Q12H
     Route: 048
     Dates: start: 20241202, end: 20241204
  3. OXYCODONE HYDROCHLORIDE [Suspect]
     Active Substance: OXYCODONE HYDROCHLORIDE
     Indication: Pain
     Dosage: 60 MILLIGRAM, Q12H
     Route: 048
     Dates: start: 202411, end: 202411
  4. OXYCODONE HYDROCHLORIDE [Suspect]
     Active Substance: OXYCODONE HYDROCHLORIDE
     Dosage: 20 MILLIGRAM, Q12H
     Route: 048
     Dates: start: 202411, end: 202411
  5. OXYCODONE AND ACETAMINOPHEN [Suspect]
     Active Substance: ACETAMINOPHEN\OXYCODONE HYDROCHLORIDE
     Indication: Pain
     Dosage: 1 TABLET, Q6H
     Route: 065
     Dates: start: 202411
  6. MORPHINE HYDROCHLORIDE [Concomitant]
     Active Substance: MORPHINE HYDROCHLORIDE
     Indication: Pain
     Dosage: 20 MILLIGRAM, DAILY
     Route: 048
     Dates: start: 20241202, end: 20241204

REACTIONS (3)
  - Tremor [Unknown]
  - Altered state of consciousness [Unknown]
  - Delirium [Unknown]

NARRATIVE: CASE EVENT DATE: 20241101
